FAERS Safety Report 6791182-5 (Version None)
Quarter: 2010Q2

REPORT INFORMATION
  Report Type: 
  Country: None (occurrence: None)
  Receive Date: 20100624
  Receipt Date: 20100617
  Transmission Date: 20101027
  Serious: Yes (Other)
  Sender: FDA-Public Use
  Company Number: DE-BAYER-201029662GPV

PATIENT

DRUGS (3)
  1. SORAFENIB [Suspect]
     Indication: TRANSITIONAL CELL CARCINOMA
     Dosage: TOTAL DAILY DOSE: 800 MG
  2. GEMCITABINE HCL [Suspect]
     Indication: TRANSITIONAL CELL CARCINOMA
     Dosage: ON DAY 1 AND 8
     Route: 042
  3. CISPLATIN [Suspect]
     Indication: TRANSITIONAL CELL CARCINOMA
     Dosage: ON DAY 2
     Route: 042

REACTIONS (1)
  - CARDIAC DISORDER [None]
